FAERS Safety Report 20949917 (Version 1)
Quarter: 2022Q2

REPORT INFORMATION
  Report Type: Spontaneous
  Country: US (occurrence: US)
  Receive Date: 20220613
  Receipt Date: 20220613
  Transmission Date: 20220720
  Serious: No
  Sender: FDA-Public Use
  Company Number: US-STRIDES ARCOLAB LIMITED-2021SP030477

PATIENT
  Sex: Male
  Weight: .725 kg

DRUGS (4)
  1. HYDROCORTISONE [Suspect]
     Active Substance: HYDROCORTISONE
     Indication: Hypotension
     Dosage: UNK
     Route: 065
  2. INDOMETHACIN [Concomitant]
     Active Substance: INDOMETHACIN
     Indication: Patent ductus arteriosus
     Dosage: UNK
     Route: 065
  3. ACETAMINOPHEN [Concomitant]
     Active Substance: ACETAMINOPHEN
     Indication: Patent ductus arteriosus
     Dosage: UNK, GIVEN FROM DAY OF LIFE 5 TO 16
     Route: 065
  4. DOPAMINE [Concomitant]
     Active Substance: DOPAMINE HYDROCHLORIDE
     Indication: Hypotension
     Dosage: UNK
     Route: 065

REACTIONS (1)
  - Off label use [Unknown]
